FAERS Safety Report 6546914-8 (Version None)
Quarter: 2010Q1

REPORT INFORMATION
  Report Type: 
  Country: None (occurrence: None)
  Receive Date: 20100119
  Receipt Date: 20100104
  Transmission Date: 20100710
  Serious: Yes (Hospitalization)
  Sender: FDA-Public Use
  Company Number: 2009AC000488

PATIENT
  Age: 59 Year
  Sex: Male

DRUGS (26)
  1. DIGOXIN [Suspect]
     Dosage: 0.25 MG; PO
     Route: 048
  2. ALPHAGAN [Concomitant]
  3. GLYBURIDE [Concomitant]
  4. ACIPHEX [Concomitant]
  5. COREG [Concomitant]
  6. SIMVASTATIN [Concomitant]
  7. METFORMIN HCL [Concomitant]
  8. ACIPHEX [Concomitant]
  9. XALATAN [Concomitant]
  10. SPIRONOLACTONE [Concomitant]
  11. LISINOPRIL [Concomitant]
  12. FUROSEMIDE [Concomitant]
  13. ACETAZOLAMIDE [Concomitant]
  14. COSOPT [Concomitant]
  15. LASIX [Concomitant]
  16. ZOCOR [Concomitant]
  17. ALDACTONE [Concomitant]
  18. DIAMOX SRC [Concomitant]
  19. ASPIRIN [Concomitant]
  20. LANTUS [Concomitant]
  21. KAYEXALATE [Concomitant]
  22. BICITRA [Concomitant]
  23. CARVEDILOL [Concomitant]
  24. POTASSIUM CHLORIDE [Concomitant]
  25. GLIPIZIDE [Concomitant]
  26. NITROGLYCERIN [Concomitant]

REACTIONS (6)
  - BLOOD POTASSIUM INCREASED [None]
  - HYPERTENSION [None]
  - METABOLIC ACIDOSIS [None]
  - MUSCULOSKELETAL PAIN [None]
  - NECK PAIN [None]
  - RENAL FAILURE CHRONIC [None]
